FAERS Safety Report 15733293 (Version 2)
Quarter: 2018Q4

REPORT INFORMATION
  Report Type: Spontaneous
  Country: PT (occurrence: PT)
  Receive Date: 20181218
  Receipt Date: 20181222
  Transmission Date: 20190205
  Serious: Yes (Other)
  Sender: FDA-Public Use
  Company Number: PT-TEVA-2018-PT-987933

PATIENT
  Age: 57 Year
  Weight: 56 kg

DRUGS (2)
  1. CETOROLAC CLARIS [Suspect]
     Active Substance: KETOROLAC\KETOROLAC TROMETHAMINE
     Indication: PAIN
     Dosage: 30 MILLIGRAM DAILY; 30 MG/1ML LOT B5A0313 VALID UP TO 10-2019
     Route: 042
     Dates: start: 20181122, end: 20181122
  2. LEVOFLOXACINA HIKMA [Suspect]
     Active Substance: LEVOFLOXACIN SODIUM
     Indication: PNEUMONIA
     Dosage: 500 MILLIGRAM DAILY; 500 MG/100ML
     Route: 042
     Dates: start: 20181122, end: 20181122

REACTIONS (3)
  - Lip oedema [Recovered/Resolved]
  - Eye irritation [Recovered/Resolved]
  - Throat tightness [Recovered/Resolved]

NARRATIVE: CASE EVENT DATE: 20181122
